FAERS Safety Report 10558109 (Version 2)
Quarter: 2014Q4

REPORT INFORMATION
  Report Type: Spontaneous
  Country: JP (occurrence: JP)
  Receive Date: 20141031
  Receipt Date: 20141218
  Transmission Date: 20150529
  Serious: Yes (Other)
  Sender: FDA-Public Use
  Company Number: JP-BAYER-2014-157204

PATIENT
  Age: 76 Year
  Sex: Male

DRUGS (1)
  1. ADALAT [Suspect]
     Active Substance: NIFEDIPINE
     Route: 048

REACTIONS (1)
  - Aspiration [Recovered/Resolved]

NARRATIVE: CASE EVENT DATE: 20140924
